FAERS Safety Report 23770176 (Version 1)
Quarter: 2024Q2

REPORT INFORMATION
  Report Type: Spontaneous
  Country: US (occurrence: US)
  Receive Date: 20240422
  Receipt Date: 20240422
  Transmission Date: 20240716
  Serious: No
  Sender: FDA-Public Use
  Company Number: US-BRISTOL-MYERS SQUIBB COMPANY-2024-060600

PATIENT
  Age: 63 Year
  Sex: Male

DRUGS (2)
  1. ABRAXANE [Suspect]
     Active Substance: PACLITAXEL
     Indication: Neoplasm malignant
     Route: 042
  2. ABRAXANE [Suspect]
     Active Substance: PACLITAXEL
     Dates: start: 20240228

REACTIONS (2)
  - Drug intolerance [Unknown]
  - Off label use [Unknown]
